FAERS Safety Report 21371356 (Version 1)
Quarter: 2022Q3

REPORT INFORMATION
  Report Type: Spontaneous
  Country: GR (occurrence: GR)
  Receive Date: 20220923
  Receipt Date: 20220923
  Transmission Date: 20221026
  Serious: Yes (Other)
  Sender: FDA-Public Use
  Company Number: GR-MYLANLABS-2022M1094878

PATIENT
  Age: 79 Year
  Sex: Male

DRUGS (3)
  1. ZOLEDRONIC ACID [Suspect]
     Active Substance: ZOLEDRONIC ACID
     Indication: Hypercalcaemia
     Dosage: 2 MILLIGRAM
     Route: 065
  2. ETELCALCETIDE [Concomitant]
     Active Substance: ETELCALCETIDE
     Dosage: 15 MILLIGRAM, 3XW
     Route: 065
  3. PARICALCITOL [Concomitant]
     Active Substance: PARICALCITOL
     Dosage: 5 MILLIGRAM, BIWEEKLY
     Route: 065

REACTIONS (2)
  - Hip fracture [Unknown]
  - Aortic aneurysm [Unknown]
